FAERS Safety Report 8574804-8 (Version None)
Quarter: 2012Q3

REPORT INFORMATION
  Report Type: 
  Country: None (occurrence: None)
  Receive Date: 20120807
  Receipt Date: 20120719
  Transmission Date: 20120928
  Serious: No
  Sender: FDA-Public Use
  Company Number: US-009507513-1207USA008582

PATIENT

DRUGS (4)
  1. RIBAVIRIN [Suspect]
     Indication: HEPATITIS C
  2. VICTRELIS [Suspect]
     Indication: HEPATITIS C
     Dosage: 4 DF, TID
     Route: 048
  3. PEGASYS [Suspect]
     Indication: HEPATITIS C
  4. LEVOXYL [Concomitant]

REACTIONS (8)
  - HYPOGEUSIA [None]
  - RED BLOOD CELL COUNT DECREASED [None]
  - NAUSEA [None]
  - ASTHENIA [None]
  - SLUGGISHNESS [None]
  - APPETITE DISORDER [None]
  - WHITE BLOOD CELL COUNT DECREASED [None]
  - VOMITING [None]
